FAERS Safety Report 23030816 (Version 1)
Quarter: 2023Q4

REPORT INFORMATION
  Report Type: Spontaneous
  Country: US (occurrence: US)
  Receive Date: 20231005
  Receipt Date: 20231005
  Transmission Date: 20240109
  Serious: Yes (Other)
  Sender: FDA-Public Use
  Company Number: US-CADILA HEALTHCARE LIMITED-US-ZYDUS-098384

PATIENT

DRUGS (1)
  1. BUPROPION [Suspect]
     Active Substance: BUPROPION
     Indication: Suicide attempt
     Dosage: UNK
     Route: 065

REACTIONS (9)
  - Shock [Unknown]
  - Electrocardiogram QRS complex prolonged [Unknown]
  - Electrocardiogram QT prolonged [Unknown]
  - Ventricular hypokinesia [Unknown]
  - Ejection fraction decreased [Unknown]
  - Generalised tonic-clonic seizure [Unknown]
  - Ventricular tachycardia [Unknown]
  - Tachycardia [Unknown]
  - Overdose [Unknown]
